FAERS Safety Report 21014271 (Version 1)
Quarter: 2022Q2

REPORT INFORMATION
  Report Type: Spontaneous
  Country: US (occurrence: US)
  Receive Date: 20220627
  Receipt Date: 20220627
  Transmission Date: 20220721
  Serious: Yes (Other)
  Sender: FDA-Public Use
  Company Number: US-BRISTOL-MYERS SQUIBB COMPANY-2022-060178

PATIENT
  Age: 82 Year
  Sex: Male

DRUGS (29)
  1. REVLIMID [Suspect]
     Active Substance: LENALIDOMIDE
     Indication: Plasma cell myeloma
     Dosage: TAKE 1 CAPSULE BY MOUTH FOR 14 DAYS AND 7 DAYS OFF (21 DAYS CYCLE). TAKE WHOLE WITH WATER AT THE SAM
     Route: 048
     Dates: start: 20210707
  2. REVLIMID [Suspect]
     Active Substance: LENALIDOMIDE
     Dosage: DAILY 21 DAYS
     Route: 048
  3. REVLIMID [Suspect]
     Active Substance: LENALIDOMIDE
     Dosage: 1 CAPSULE (25 MG) BY MOUTH FOR 14 DAYS FOLLOWED BY 7 DAYS REST
     Route: 048
     Dates: start: 20210727
  4. REVLIMID [Suspect]
     Active Substance: LENALIDOMIDE
     Dosage: TAKE WHOLE WITH WATER AT THE SAME TIME DAILY.
     Route: 048
     Dates: start: 20210820
  5. REVLIMID [Suspect]
     Active Substance: LENALIDOMIDE
     Route: 048
     Dates: start: 20210910
  6. REVLIMID [Suspect]
     Active Substance: LENALIDOMIDE
     Dosage: 1TO 14 DAYS FOLLOWED BY A 7 DAYS BREAK. TAKE WHOLE WITH WATER AT THE SAME TIME DAILY.
     Route: 048
     Dates: start: 20211022
  7. REVLIMID [Suspect]
     Active Substance: LENALIDOMIDE
     Dosage: EVERY 14 DAYS, FOLLOWED BY 7DAYS BREAK, TAKE WHOLE WITH WATER AT THE SAME TIME DAILY.
     Route: 048
     Dates: start: 20211227
  8. REVLIMID [Suspect]
     Active Substance: LENALIDOMIDE
     Dosage: EVERY DAY FOR 21 DAYS, 7 DAYS OFF. TAKE WHOLE WITH WATER, WITH OR WITHOUT FOOD, APPROX. THE SAME TIM
     Route: 048
     Dates: start: 20220124
  9. REVLIMID [Suspect]
     Active Substance: LENALIDOMIDE
     Dosage: EVERY DAY ON 1 THROUGH 21 DAYS, FOLLOWED BY7 DAYS OFF.
     Route: 048
     Dates: start: 20220222
  10. REVLIMID [Suspect]
     Active Substance: LENALIDOMIDE
     Dosage: EVERY DAY FOR 21DAYS, FOLLOWED BY 7 DAYS OFF
     Route: 048
     Dates: start: 20220323
  11. REVLIMID [Suspect]
     Active Substance: LENALIDOMIDE
     Dosage: ON DAYS 1 THROUGH 21 DAYS, 7 DAYS OFF TAKE WHOLE WITH OR WITHOUT FOOD ON THE SAME TIME EVERY DAY.
     Route: 048
     Dates: start: 20210422
  12. REVLIMID [Suspect]
     Active Substance: LENALIDOMIDE
     Dosage: 21 DAYS FOLLOWED BY 7 DAYS OFF WHOLE WITH OR WITHOUT FOOD ON THE SAME TIME EVERY DAY.
     Route: 048
     Dates: start: 20220520
  13. REVLIMID [Suspect]
     Active Substance: LENALIDOMIDE
     Dosage: FOR 21 DAYS FOLLOWED BY 7 DAYS OFF TAKE WHOLE WITH OR WITHOUT FOOD ON THE SAME TIME EVERY DAY.
     Route: 048
     Dates: start: 20220616
  14. PFIZER-BIONTECH COVID-19 VACCINE [Concomitant]
     Active Substance: TOZINAMERAN
     Dosage: ADMINISTERED IN MUSCLE AS DIRECTED
     Route: 065
     Dates: start: 20210821
  15. FLUCONAZOLE [Concomitant]
     Active Substance: FLUCONAZOLE
     Dosage: 6
  16. ACETAMINOPHEN [Concomitant]
     Active Substance: ACETAMINOPHEN
     Indication: Product used for unknown indication
     Route: 065
  17. ACYCLOVIR [Concomitant]
     Active Substance: ACYCLOVIR
     Indication: Product used for unknown indication
     Route: 065
  18. ALBUTEROL [Concomitant]
     Active Substance: ALBUTEROL
     Indication: Product used for unknown indication
     Dosage: 200 PUFFS
     Route: 065
  19. ALLOPURINOL [Concomitant]
     Active Substance: ALLOPURINOL
     Indication: Product used for unknown indication
     Route: 065
  20. AMLODIPINE BESYLATE [Concomitant]
     Active Substance: AMLODIPINE BESYLATE
     Indication: Product used for unknown indication
     Route: 065
  21. COENZYME Q10 [Concomitant]
     Active Substance: DIETARY SUPPLEMENT\UBIDECARENONE
     Indication: Product used for unknown indication
     Route: 065
  22. DEXAMETHASONE [Concomitant]
     Active Substance: DEXAMETHASONE
     Indication: Product used for unknown indication
     Route: 065
  23. DOCUSATE SODIUM [Concomitant]
     Active Substance: DOCUSATE SODIUM
     Indication: Product used for unknown indication
     Route: 065
  24. DRONABINOL [Concomitant]
     Active Substance: DRONABINOL
     Indication: Product used for unknown indication
     Route: 065
  25. MIRALAX [Concomitant]
     Active Substance: POLYETHYLENE GLYCOL 3350
     Indication: Product used for unknown indication
     Dosage: 3350 NF POWDER 119GM (OTC)
     Route: 065
  26. NITROGLYCERIN [Concomitant]
     Active Substance: NITROGLYCERIN
     Indication: Product used for unknown indication
     Dosage: SUB TAB 25
     Route: 065
  27. PANTOPRAZOLE [Concomitant]
     Active Substance: PANTOPRAZOLE
     Indication: Product used for unknown indication
     Route: 065
  28. ROSUVASTATIN [Concomitant]
     Active Substance: ROSUVASTATIN
     Indication: Product used for unknown indication
     Route: 065
  29. XARELTO [Concomitant]
     Active Substance: RIVAROXABAN
     Indication: Product used for unknown indication
     Route: 065

REACTIONS (4)
  - Myalgia [Unknown]
  - Arthralgia [Unknown]
  - Thrombocytopenia [Unknown]
  - Off label use [Unknown]

NARRATIVE: CASE EVENT DATE: 20220501
